FAERS Safety Report 6824172-4 (Version None)
Quarter: 2010Q3

REPORT INFORMATION
  Report Type: 
  Country: None (occurrence: None)
  Receive Date: 20100708
  Receipt Date: 20070413
  Transmission Date: 20110219
  Serious: No
  Sender: FDA-Public Use
  Company Number: US-PFIZER INC-2006126507

PATIENT
  Sex: Female
  Weight: 56.7 kg

DRUGS (2)
  1. CHANTIX [Suspect]
     Indication: SMOKING CESSATION THERAPY
     Dates: start: 20061003
  2. SYNTHROID [Concomitant]

REACTIONS (5)
  - ABNORMAL DREAMS [None]
  - DRY MOUTH [None]
  - DYSGEUSIA [None]
  - MENOPAUSE [None]
  - STRESS [None]
